FAERS Safety Report 5306388-1 (Version None)
Quarter: 2007Q2

REPORT INFORMATION
  Report Type: 
  Country: None (occurrence: None)
  Receive Date: 20070419
  Receipt Date: 20070406
  Transmission Date: 20071010
  Serious: Yes (Hospitalization)
  Sender: FDA-Public Use
  Company Number: RTD20070004

PATIENT
  Age: 43 Year
  Sex: Female

DRUGS (4)
  1. RANITIDINE HCL [Suspect]
     Indication: ABDOMINAL PAIN
     Dates: start: 20020601, end: 20020601
  2. TROXIPIDE [Suspect]
     Indication: ABDOMINAL PAIN
     Dates: start: 20020601, end: 20020601
  3. TIMEPIDIUM BROMIDE [Suspect]
     Indication: ABDOMINAL PAIN
     Dates: start: 20020601, end: 20020601
  4. DIGESTIVE ENZYME [Suspect]
     Indication: ABDOMINAL PAIN
     Dates: start: 20020601, end: 20020601

REACTIONS (11)
  - ALANINE AMINOTRANSFERASE INCREASED [None]
  - BLOOD ALBUMIN DECREASED [None]
  - BLOOD ALKALINE PHOSPHATASE INCREASED [None]
  - BLOOD BILIRUBIN DECREASED [None]
  - DRUG HYPERSENSITIVITY [None]
  - GAMMA-GLUTAMYLTRANSFERASE INCREASED [None]
  - GRANULOMA [None]
  - LEUCINE AMINOPEPTIDASE INCREASED [None]
  - SALIVARY DUCT INFLAMMATION [None]
  - SIALOADENITIS [None]
  - WHITE BLOOD CELL COUNT INCREASED [None]
